FAERS Safety Report 4287172-7 (Version None)
Quarter: 2004Q1

REPORT INFORMATION
  Report Type: 
  Country: None (occurrence: None)
  Receive Date: 20040126
  Receipt Date: 20030821
  Transmission Date: 20041129
  Serious: No
  Sender: FDA-Public Use
  Company Number: USA030845082

PATIENT
  Age: 75 Year
  Sex: Female
  Weight: 44 kg

DRUGS (4)
  1. FORTEO [Suspect]
     Indication: OSTEOPOROSIS
     Dosage: 20 UG/1 DAY
     Dates: start: 20030401
  2. VIACTIV [Concomitant]
  3. ACTONEL [Concomitant]
  4. DARVOCET-N 100 [Concomitant]

REACTIONS (3)
  - BONE PAIN [None]
  - SPINAL FRACTURE [None]
  - SUBCUTANEOUS NODULE [None]
